FAERS Safety Report 8172023-0 (Version None)
Quarter: 2012Q1

REPORT INFORMATION
  Report Type: 
  Country: None (occurrence: None)
  Receive Date: 20120228
  Receipt Date: 20120220
  Transmission Date: 20120608
  Serious: Yes (Other)
  Sender: FDA-Public Use
  Company Number: PHHY2012ES014880

PATIENT
  Age: 22 Year
  Sex: Female

DRUGS (1)
  1. AMOXICILLIN [Suspect]
     Indication: OTITIS MEDIA
     Dosage: 1500 MG, UNK
     Route: 048
     Dates: start: 20120101, end: 20120101

REACTIONS (3)
  - FACE OEDEMA [None]
  - RASH [None]
  - DYSPNOEA [None]
